FAERS Safety Report 22343621 (Version 9)
Quarter: 2025Q1

REPORT INFORMATION
  Report Type: Report from Study
  Country: ES (occurrence: ES)
  Receive Date: 20230519
  Receipt Date: 20250326
  Transmission Date: 20250409
  Serious: Yes (Hospitalization, Other)
  Sender: TAKEDA
  Company Number: ES-TAKEDA-2022TUS091759

PATIENT
  Age: 3 Year
  Sex: Male

DRUGS (12)
  1. TEDUGLUTIDE [Suspect]
     Active Substance: TEDUGLUTIDE
     Indication: Short-bowel syndrome
     Dosage: 0.3 MILLIGRAM, QD
     Dates: start: 202109, end: 20220425
  2. TEDUGLUTIDE [Suspect]
     Active Substance: TEDUGLUTIDE
     Dosage: 0.35 MILLIGRAM, QD
     Dates: start: 20220425, end: 20240115
  3. TEDUGLUTIDE [Suspect]
     Active Substance: TEDUGLUTIDE
     Dosage: 0.4 MILLIGRAM, QD
     Dates: start: 20240115, end: 20240826
  4. TEDUGLUTIDE [Suspect]
     Active Substance: TEDUGLUTIDE
     Dosage: 0.5 MILLIGRAM, QD
     Dates: start: 20240826
  5. ENOXAPARIN SODIUM [Concomitant]
     Active Substance: ENOXAPARIN SODIUM
     Indication: Coagulopathy
     Dosage: 10 MILLIGRAM, BID
     Dates: start: 20221120, end: 20230825
  6. Glutaferro [Concomitant]
     Indication: Iron deficiency anaemia
     Dosage: 1 MILLILITER, QD
     Dates: start: 20220629, end: 20221120
  7. IRON [Concomitant]
     Active Substance: IRON
     Indication: Iron deficiency
     Dosage: UNK UNK, Q2WEEKS
     Dates: start: 202211
  8. Hibor [Concomitant]
     Indication: Thrombosis
     Dosage: 2500 INTERNATIONAL UNIT, QD
     Dates: start: 20231110, end: 20240115
  9. Salvacolina [Concomitant]
     Indication: Antidiarrhoeal supportive care
     Dosage: 0.36 MILLIGRAM, BID
     Dates: start: 20231113, end: 20240115
  10. CHOLESTYRAMINE [Concomitant]
     Active Substance: CHOLESTYRAMINE
     Indication: Hypercholesterolaemia
     Dosage: 0.4 GRAM, TID
     Dates: start: 20240115
  11. URSODIOL [Concomitant]
     Active Substance: URSODIOL
     Indication: Cholestasis
     Dosage: 50 MILLIGRAM, TID
     Dates: start: 20240115
  12. ALBUTEROL [Concomitant]
     Active Substance: ALBUTEROL
     Indication: Bronchospasm
     Dates: start: 20241028, end: 20241101

REACTIONS (4)
  - Vascular device infection [Recovered/Resolved]
  - Hypokalaemia [Recovered/Resolved]
  - Hypophosphataemia [Recovered/Resolved]
  - Venous thrombosis [Recovered/Resolved]

NARRATIVE: CASE EVENT DATE: 20221121
